FAERS Safety Report 18973282 (Version 1)
Quarter: 2021Q1

REPORT INFORMATION
  Report Type: Report from Study
  Country: BR (occurrence: BR)
  Receive Date: 20210305
  Receipt Date: 20210305
  Transmission Date: 20210420
  Serious: Yes (Other)
  Sender: FDA-Public Use
  Company Number: NVSC2021BR047954

PATIENT
  Age: 43 Year
  Sex: Male

DRUGS (1)
  1. TRILEPTAL [Suspect]
     Active Substance: OXCARBAZEPINE
     Indication: PRODUCT USED FOR UNKNOWN INDICATION
     Dosage: 300 MG/ 60
     Route: 065
     Dates: start: 2017

REACTIONS (10)
  - Partial seizures [Recovering/Resolving]
  - Movement disorder [Recovering/Resolving]
  - Ill-defined disorder [Unknown]
  - Speech disorder [Recovering/Resolving]
  - Syncope [Unknown]
  - Malaise [Recovering/Resolving]
  - Abdominal pain [Unknown]
  - Skin discolouration [Unknown]
  - Depressed mood [Unknown]
  - Depression [Unknown]

NARRATIVE: CASE EVENT DATE: 20210223
